FAERS Safety Report 6491000-9 (Version None)
Quarter: 2009Q4

REPORT INFORMATION
  Report Type: 
  Country: None (occurrence: None)
  Receive Date: 20091211
  Receipt Date: 20091207
  Transmission Date: 20100525
  Serious: Yes (Death)
  Sender: FDA-Public Use
  Company Number: AU-ROCHE-673103

PATIENT
  Sex: Female

DRUGS (2)
  1. AVASTIN [Suspect]
     Indication: COLORECTAL CANCER
     Route: 065
  2. IRINOTECAN HCL [Concomitant]
     Indication: COLORECTAL CANCER

REACTIONS (2)
  - HAEMORRHAGE [None]
  - MALIGNANT NEOPLASM PROGRESSION [None]
